FAERS Safety Report 5751114-5 (Version None)
Quarter: 2008Q2

REPORT INFORMATION
  Report Type: 
  Country: None (occurrence: None)
  Receive Date: 20080528
  Receipt Date: 20080515
  Transmission Date: 20081010
  Serious: Yes (Death)
  Sender: FDA-Public Use
  Company Number: US-ELI_LILLY_AND_COMPANY-US200805003326

PATIENT
  Age: 39 Year
  Sex: Male

DRUGS (5)
  1. CYMBALTA [Suspect]
     Dosage: 30 MG, EVERY 6 HRS
     Dates: start: 20080419
  2. LUNESTA [Concomitant]
     Dosage: 3 MG, EACH EVENING
     Dates: start: 20080419
  3. DEPAKOTE ER [Concomitant]
     Dosage: 500 MG, 2/D
     Dates: start: 20080419
  4. FENTANYL-100 [Concomitant]
     Indication: PAIN
     Dosage: 100 UG, OTHER
     Route: 062
     Dates: start: 20080419
  5. VALIUM [Concomitant]
     Dosage: 0.5 MG, DAILY (1/D)
     Dates: start: 20080419

REACTIONS (1)
  - CARDIO-RESPIRATORY ARREST [None]
